FAERS Safety Report 4922899-2 (Version None)
Quarter: 2006Q1

REPORT INFORMATION
  Report Type: 
  Country: None (occurrence: None)
  Receive Date: 20060221
  Receipt Date: 20060130
  Transmission Date: 20060701
  Serious: Yes (Hospitalization, Disabling)
  Sender: FDA-Public Use
  Company Number: 221813

PATIENT
  Age: 63 Year
  Sex: Female
  Weight: 116.8012 kg

DRUGS (2)
  1. BEVACIZUMAB OR PLACEBO (BEVACIZUMAB)PWDR + SOLVENT, INFUSION SOLN, 100 [Suspect]
     Indication: NON-SMALL CELL LUNG CANCER
     Dosage: 7.5 Q3W INTRAVENOUS
     Route: 042
     Dates: start: 20051208
  2. CISPLATIN [Suspect]
     Indication: NON-SMALL CELL LUNG CANCER
     Dosage: 80MG/M2 Q2W INTRAVENOUS
     Route: 042
     Dates: start: 20051208

REACTIONS (6)
  - AORTIC EMBOLUS [None]
  - CAROTID ARTERY OCCLUSION [None]
  - CAROTID ARTERY STENOSIS [None]
  - CEREBRAL ISCHAEMIA [None]
  - INTRACRANIAL ANEURYSM [None]
  - MONOPARESIS [None]
